FAERS Safety Report 9748060 (Version 1)
Quarter: 2013Q4

REPORT INFORMATION
  Report Type: Spontaneous
  Country: US (occurrence: US)
  Receive Date: 20131212
  Receipt Date: 20131212
  Transmission Date: 20140711
  Serious: No
  Sender: FDA-Public Use
  Company Number: US-TEVA-387257USA

PATIENT
  Sex: Female
  Weight: 47.67 kg

DRUGS (1)
  1. PARAGARD 380A [Suspect]
     Route: 015
     Dates: start: 201006

REACTIONS (4)
  - Dyspareunia [Not Recovered/Not Resolved]
  - Pelvic pain [Not Recovered/Not Resolved]
  - Abdominal pain [Not Recovered/Not Resolved]
  - Infection [Recovered/Resolved]
